FAERS Safety Report 15173348 (Version 1)
Quarter: 2018Q3

REPORT INFORMATION
  Report Type: Spontaneous
  Country: AU (occurrence: AU)
  Receive Date: 20180720
  Receipt Date: 20180720
  Transmission Date: 20181010
  Serious: Yes (Hospitalization)
  Sender: FDA-Public Use
  Company Number: AU-MYLANLABS-2018M1053504

PATIENT
  Age: 56 Year
  Sex: Female
  Weight: 84 kg

DRUGS (2)
  1. METHOTREXATE. [Suspect]
     Active Substance: METHOTREXATE
     Indication: RHEUMATOID ARTHRITIS
     Route: 048
  2. METHOTREXATE. [Suspect]
     Active Substance: METHOTREXATE
     Dosage: SINGLE INGESTION OF 125 TABLETS OF 10MG EACH; 1250MG SINGLE INGESTION
     Route: 048

REACTIONS (16)
  - Blood bilirubin increased [Unknown]
  - Blood alkaline phosphatase increased [Unknown]
  - Alanine aminotransferase increased [Unknown]
  - Febrile neutropenia [Recovering/Resolving]
  - Sedation [Recovered/Resolved]
  - Toxicity to various agents [Unknown]
  - Bone marrow failure [Unknown]
  - Gastrointestinal toxicity [Unknown]
  - Intentional overdose [Unknown]
  - Gamma-glutamyltransferase increased [Unknown]
  - Aspartate aminotransferase increased [Unknown]
  - Blood lactate dehydrogenase increased [Unknown]
  - Mucosal ulceration [Unknown]
  - Hypoxia [Unknown]
  - Anaemia [Recovered/Resolved]
  - Pneumonia aspiration [Unknown]
